FAERS Safety Report 13107059 (Version 3)
Quarter: 2017Q1

REPORT INFORMATION
  Report Type: Spontaneous
  Country: IT (occurrence: IT)
  Receive Date: 20170111
  Receipt Date: 20170119
  Transmission Date: 20170428
  Serious: Yes (Hospitalization)
  Sender: FDA-Public Use
  Company Number: IT-ROCHE-1877739

PATIENT
  Age: 55 Year
  Sex: Male

DRUGS (3)
  1. DEPAKIN [Suspect]
     Active Substance: VALPROATE SODIUM
     Indication: PRODUCT USED FOR UNKNOWN INDICATION
     Dosage: ^CHRONO 300 MG PROLONGED-RELEASE TABLETS^
     Route: 048
     Dates: start: 20170104, end: 20170104
  2. RIVOTRIL [Suspect]
     Active Substance: CLONAZEPAM
     Indication: PRODUCT USED FOR UNKNOWN INDICATION
     Dosage: ^2.5 MG/ML ORAL DROPS, SOLUTION^ 10 ML
     Route: 048
     Dates: start: 20170104, end: 20170104
  3. TAVOR (LORAZEPAM) [Suspect]
     Active Substance: LORAZEPAM
     Indication: PRODUCT USED FOR UNKNOWN INDICATION
     Dosage: ^1 MG TABLETS^ 20 TABLETS^
     Route: 048
     Dates: start: 20170104, end: 20170104

REACTIONS (3)
  - Drug abuse [Unknown]
  - Sopor [Recovered/Resolved]
  - Suicide attempt [Unknown]

NARRATIVE: CASE EVENT DATE: 20170104
